FAERS Safety Report 8815080 (Version 1)
Quarter: 2012Q4

REPORT INFORMATION
  Report Type: 
  Country: CM (occurrence: CM)
  Receive Date: 20120928
  Receipt Date: 20120928
  Transmission Date: 20130627
  Serious: Yes (Death, Other)
  Sender: FDA-Public Use
  Company Number: PHHY2012CM002342

PATIENT
  Sex: Female

DRUGS (2)
  1. GLIVEC [Suspect]
     Indication: CHRONIC MYELOID LEUKAEMIA
     Dosage: 400 mg, daily
  2. GLIVEC [Suspect]
     Dosage: 600 mg, UNK

REACTIONS (3)
  - Death [Fatal]
  - Blast crisis in myelogenous leukaemia [Unknown]
  - Chronic myeloid leukaemia [Unknown]
